FAERS Safety Report 11353414 (Version 1)
Quarter: 2015Q3

REPORT INFORMATION
  Report Type: Spontaneous
  Country: US (occurrence: US)
  Receive Date: 20150807
  Receipt Date: 20150807
  Transmission Date: 20151125
  Serious: No
  Sender: FDA-Public Use
  Company Number: US-JNJFOC-20150409461

PATIENT
  Sex: Female
  Weight: 78.47 kg

DRUGS (5)
  1. OTHER DERMATOLOGICAL PREPARATIONS [Concomitant]
     Indication: HAIR DISORDER
     Route: 065
  2. MENS ROGAINE EXTRA STRENGTH [Suspect]
     Active Substance: MINOXIDIL
     Indication: HAIR GROWTH ABNORMAL
     Dosage: HALF A CAPFUL
     Route: 061
  3. INSULIN [Concomitant]
     Active Substance: INSULIN NOS
     Indication: TYPE 2 DIABETES MELLITUS
     Route: 065
  4. MENS ROGAINE EXTRA STRENGTH [Suspect]
     Active Substance: MINOXIDIL
     Route: 061
  5. GLYBURIDE. [Concomitant]
     Active Substance: GLYBURIDE
     Indication: TYPE 2 DIABETES MELLITUS
     Route: 065

REACTIONS (7)
  - Wrong patient received medication [Unknown]
  - Skin irritation [Not Recovered/Not Resolved]
  - Alopecia [Unknown]
  - Skin tightness [Not Recovered/Not Resolved]
  - Inappropriate schedule of drug administration [Unknown]
  - Pain of skin [Not Recovered/Not Resolved]
  - Wrong technique in product usage process [Unknown]
